FAERS Safety Report 9418104 (Version 2)
Quarter: 2013Q3

REPORT INFORMATION
  Report Type: Spontaneous
  Country: US (occurrence: US)
  Receive Date: 20130724
  Receipt Date: 20130822
  Transmission Date: 20140515
  Serious: Yes (Hospitalization)
  Sender: FDA-Public Use
  Company Number: US-B.I. PHARMACEUTICALS,INC./RIDGEFIELD-2013-BI-21542BP

PATIENT
  Age: 87 Year
  Sex: Male
  Weight: 118.4 kg

DRUGS (8)
  1. PRADAXA [Suspect]
     Indication: ATRIAL FIBRILLATION
     Dosage: 300 MG
     Route: 048
     Dates: start: 20130624, end: 20130704
  2. LOSARTAN [Concomitant]
     Indication: CEREBROVASCULAR ACCIDENT
     Dosage: 50 MG
     Route: 048
     Dates: start: 201306
  3. LOSARTAN [Concomitant]
     Indication: HYPERTENSION
  4. LOSARTAN [Concomitant]
     Indication: CARDIOMYOPATHY
  5. CARVEDILOL [Concomitant]
     Indication: CEREBROVASCULAR ACCIDENT
     Dosage: 25 MG
     Route: 048
     Dates: start: 2011
  6. CARVEDILOL [Concomitant]
     Indication: HYPERTENSION
  7. CARVEDILOL [Concomitant]
     Indication: CARDIOMYOPATHY
  8. ATORVASTATIN [Concomitant]
     Indication: BLOOD CHOLESTEROL INCREASED
     Dosage: 20 MG
     Route: 048
     Dates: start: 201305

REACTIONS (4)
  - Dyspnoea [Recovered/Resolved]
  - Dizziness [Recovered/Resolved]
  - Gastrointestinal haemorrhage [Recovered/Resolved]
  - Melaena [Recovered/Resolved]
